FAERS Safety Report 6981633-5 (Version None)
Quarter: 2010Q3

REPORT INFORMATION
  Report Type: 
  Country: None (occurrence: None)
  Receive Date: 20100914
  Receipt Date: 20090811
  Transmission Date: 20110219
  Serious: No
  Sender: FDA-Public Use
  Company Number: US-PFIZER INC-2009254561

PATIENT
  Sex: Female

DRUGS (1)
  1. LYRICA [Suspect]
     Dosage: UNK

REACTIONS (5)
  - EAR PAIN [None]
  - PAIN IN EXTREMITY [None]
  - PAIN IN JAW [None]
  - TOOTHACHE [None]
  - VISION BLURRED [None]
